FAERS Safety Report 19385683 (Version 1)
Quarter: 2021Q2

REPORT INFORMATION
  Report Type: Spontaneous
  Country: US (occurrence: US)
  Receive Date: 20210605
  Receipt Date: 20210605
  Transmission Date: 20210717
  Serious: Yes (Disabling)
  Sender: FDA-Public Use
  Company Number: None

PATIENT
  Age: 34 Year
  Sex: Female
  Weight: 58.5 kg

DRUGS (7)
  1. OMEGA 3 [Concomitant]
     Active Substance: OMEGA-3 FATTY ACIDS
  2. ZINC. [Concomitant]
     Active Substance: ZINC
  3. LEXAPRO [Suspect]
     Active Substance: ESCITALOPRAM OXALATE
     Indication: ANXIETY
     Dosage: QUANTITY:1 TABLET(S);?
     Route: 048
     Dates: start: 20190406, end: 20201201
  4. LAMICTAL [Concomitant]
     Active Substance: LAMOTRIGINE
  5. GLYCINATE [Concomitant]
  6. PROBIOTICS [Concomitant]
     Active Substance: PROBIOTICS NOS
  7. MAGNESIUM [Concomitant]
     Active Substance: MAGNESIUM

REACTIONS (3)
  - Serotonin syndrome [None]
  - Neuralgia [None]
  - Sexual dysfunction [None]

NARRATIVE: CASE EVENT DATE: 20190603
